FAERS Safety Report 6130277-6 (Version None)
Quarter: 2009Q1

REPORT INFORMATION
  Report Type: 
  Country: None (occurrence: None)
  Receive Date: 20090324
  Receipt Date: 20090324
  Transmission Date: 20090719
  Serious: Yes (Other)
  Sender: FDA-Public Use
  Company Number: PHHO2003NL07534

PATIENT
  Sex: Female
  Weight: 80 kg

DRUGS (4)
  1. CGS 20267 T30748+ [Suspect]
     Indication: BREAST CANCER
     Dosage: 2.5 MG, QD
     Route: 048
     Dates: start: 19990614
  2. THYRAX [Concomitant]
     Indication: HYPOTHYROIDISM
     Dates: start: 19990101
  3. LIPITOR [Concomitant]
     Indication: HYPERCHOLESTEROLAEMIA
     Dates: start: 19990101
  4. ARTHROTEC [Concomitant]
     Indication: PAIN
     Dates: start: 20000101

REACTIONS (4)
  - BREAST CANCER RECURRENT [None]
  - DISEASE PROGRESSION [None]
  - DRUG INEFFECTIVE [None]
  - MALIGNANT BREAST LUMP REMOVAL [None]
